FAERS Safety Report 5170264-8 (Version None)
Quarter: 2006Q4

REPORT INFORMATION
  Report Type: 
  Country: None (occurrence: None)
  Receive Date: 20061204
  Receipt Date: 20061124
  Transmission Date: 20070319
  Serious: Yes (Death, Other)
  Sender: FDA-Public Use
  Company Number: GXKR2006ES07346

PATIENT
  Age: 60 Year
  Sex: Male

DRUGS (3)
  1. CIPROFLOXACIN [Suspect]
     Dosage: UNKNOWN
  2. IRINOTECAN (NGX) (IRINOTECAN) UNKNOWN [Suspect]
     Dosage: UNKNOWN
  3. FLUOROURACIL [Suspect]
     Dosage: UNKNOWN

REACTIONS (11)
  - BACTERAEMIA [None]
  - DEPRESSED LEVEL OF CONSCIOUSNESS [None]
  - DIARRHOEA [None]
  - HYPERGLYCAEMIA [None]
  - HYPOPROTEINAEMIA [None]
  - MUCOUS MEMBRANE DISORDER [None]
  - MULTI-ORGAN FAILURE [None]
  - PANCYTOPENIA [None]
  - PSEUDOMONAS INFECTION [None]
  - RENAL IMPAIRMENT [None]
  - TOXIC EPIDERMAL NECROLYSIS [None]
